FAERS Safety Report 4522633-4 (Version None)
Quarter: 2004Q4

REPORT INFORMATION
  Report Type: 
  Country: None (occurrence: None)
  Receive Date: 20041207
  Receipt Date: 20041117
  Transmission Date: 20050328
  Serious: Yes (Death, Life-Threatening, Hospitalization, Other)
  Sender: FDA-Public Use
  Company Number: EWC041141482

PATIENT
  Age: 71 Year
  Sex: Male
  Weight: 80 kg

DRUGS (8)
  1. XIGRIS [Suspect]
     Indication: SEPTIC SHOCK
     Dosage: 24 UG/KG/HR
     Dates: start: 20041114, end: 20041115
  2. ENOXAPARIN SODIUM [Concomitant]
  3. MEROPENEM [Concomitant]
  4. NORADRENALINE [Concomitant]
  5. ZOFRAN [Concomitant]
  6. PRIMPERAN ELIXIR [Concomitant]
  7. OMEPRAZOL (OMEPRAZOLE RATIOPHARM) [Concomitant]
  8. HYDROCORTISONE [Concomitant]

REACTIONS (10)
  - BRAIN STEM HAEMORRHAGE [None]
  - CEREBRAL ARTERY THROMBOSIS [None]
  - COMA [None]
  - INTRAVENTRICULAR HAEMORRHAGE [None]
  - KAOLIN CEPHALIN CLOTTING TIME SHORTENED [None]
  - MIOSIS [None]
  - PLATELET COUNT DECREASED [None]
  - PROTHROMBIN TIME PROLONGED [None]
  - PUPILS UNEQUAL [None]
  - RUPTURED CEREBRAL ANEURYSM [None]
